FAERS Safety Report 9461932 (Version 1)
Quarter: 2013Q3

REPORT INFORMATION
  Report Type: Spontaneous
  Country: JP (occurrence: JP)
  Receive Date: 20130816
  Receipt Date: 20130816
  Transmission Date: 20140515
  Serious: No
  Sender: FDA-Public Use
  Company Number: JP-UCBSA-095251

PATIENT
  Age: 81 Year
  Sex: Female

DRUGS (2)
  1. E KEPPRA [Suspect]
     Route: 048
  2. DEPAKENE [Concomitant]
     Route: 048

REACTIONS (1)
  - Granulocyte count decreased [Recovered/Resolved]
